FAERS Safety Report 25997306 (Version 1)
Quarter: 2025Q4

REPORT INFORMATION
  Report Type: Spontaneous
  Country: GB (occurrence: GB)
  Receive Date: 20251104
  Receipt Date: 20251104
  Transmission Date: 20260118
  Serious: Yes (Life-Threatening, Hospitalization, Disabling, Other)
  Sender: ELI LILLY AND COMPANY
  Company Number: None

PATIENT
  Age: 29 Year
  Sex: Female

DRUGS (1)
  1. MOUNJARO [Suspect]
     Active Substance: TIRZEPATIDE
     Indication: Overwork
     Dosage: UNK UNK, UNKNOWN
     Route: 065

REACTIONS (8)
  - Medication error [Unknown]
  - Hepatitis [Unknown]
  - Bile duct stone [Unknown]
  - Cholelithiasis [Recovering/Resolving]
  - Pancreatitis [Unknown]
  - Gastrointestinal disorder [Unknown]
  - Hepatic steatosis [Unknown]
  - Off label use [Unknown]

NARRATIVE: CASE EVENT DATE: 20251001
